FAERS Safety Report 17814554 (Version 2)
Quarter: 2020Q3

REPORT INFORMATION
  Report Type: Report from Study
  Country: PL (occurrence: PL)
  Receive Date: 20200522
  Receipt Date: 20200824
  Transmission Date: 20201102
  Serious: Yes (Death)
  Sender: FDA-Public Use
  Company Number: PL-REGENERON PHARMACEUTICALS, INC.-2020-37921

PATIENT

DRUGS (33)
  1. EYLEA [Suspect]
     Active Substance: AFLIBERCEPT
     Dosage: 2 MG, ONCE, SECOND INJETCION
     Route: 031
     Dates: start: 20161012, end: 20161012
  2. EYLEA [Suspect]
     Active Substance: AFLIBERCEPT
     Dosage: 2 MG, ONCE, FOURTH INJECTION
     Route: 031
     Dates: start: 20170116, end: 20170116
  3. EYLEA [Suspect]
     Active Substance: AFLIBERCEPT
     Dosage: 2 MG, ONCE, SEVENTH INJECTION
     Route: 031
     Dates: start: 20170712, end: 20170712
  4. EYLEA [Suspect]
     Active Substance: AFLIBERCEPT
     Dosage: 2 MG, ONCE, EIGTH INJECTION
     Route: 031
     Dates: start: 20170819, end: 20170819
  5. EYLEA [Suspect]
     Active Substance: AFLIBERCEPT
     Dosage: 2 MG, ONCE, FIVTEENTH INJECTION
     Route: 031
     Dates: start: 20180718, end: 20180718
  6. EYLEA [Suspect]
     Active Substance: AFLIBERCEPT
     Dosage: 2 MG, ONCE, TWENTYFOURTH INJECTION
     Route: 031
     Dates: start: 20190624, end: 20190624
  7. EYLEA [Suspect]
     Active Substance: AFLIBERCEPT
     Dosage: 2 MG, ONCE, TWENTYFIFTH INJECTION
     Route: 031
     Dates: start: 20190724, end: 20190724
  8. EYLEA [Suspect]
     Active Substance: AFLIBERCEPT
     Dosage: 2 MG, ONCE, TWENTYEIGHTH INJECTION
     Route: 031
     Dates: start: 20191118, end: 20191118
  9. EYLEA [Suspect]
     Active Substance: AFLIBERCEPT
     Dosage: 2 MG, ONCE, TENTH INJECTION
     Route: 031
     Dates: start: 20171110, end: 20171110
  10. EYLEA [Suspect]
     Active Substance: AFLIBERCEPT
     Dosage: 2 MG, ONCE, TWELFTH INJECTION
     Route: 031
     Dates: start: 20180309, end: 20180309
  11. EYLEA [Suspect]
     Active Substance: AFLIBERCEPT
     Dosage: 2 MG, ONCE, TWENTEETH INJECTION
     Route: 031
     Dates: start: 20190218, end: 20190218
  12. EYLEA [Suspect]
     Active Substance: AFLIBERCEPT
     Indication: NEOVASCULAR AGE-RELATED MACULAR DEGENERATION
     Dosage: 2 MG, ONCE, FIRST INJETCION
     Route: 031
     Dates: start: 20160912, end: 20160912
  13. EYLEA [Suspect]
     Active Substance: AFLIBERCEPT
     Dosage: 2 MG, ONCE, FIFTH INJECTION
     Route: 031
     Dates: start: 20170414, end: 20170414
  14. EYLEA [Suspect]
     Active Substance: AFLIBERCEPT
     Dosage: 2 MG, ONCE, THIRTEENTH INJECTION
     Route: 031
     Dates: start: 20180411, end: 20180411
  15. EYLEA [Suspect]
     Active Substance: AFLIBERCEPT
     Dosage: 2 MG, ONCE, NINETEENTH INJECTION
     Route: 031
     Dates: start: 20181219, end: 20181219
  16. EYLEA [Suspect]
     Active Substance: AFLIBERCEPT
     Dosage: 2 MG, ONCE, TWENTYSIXTH INJECTION
     Route: 031
     Dates: start: 20190826, end: 20190826
  17. EYLEA [Suspect]
     Active Substance: AFLIBERCEPT
     Dosage: 2 MG, ONCE, THIRTIETH INJECTION
     Route: 031
     Dates: start: 20200205, end: 20200205
  18. EYLEA [Suspect]
     Active Substance: AFLIBERCEPT
     Dosage: 2 MG, ONCE, SIXTEENTH INJECTION
     Route: 031
     Dates: start: 20180827, end: 20180827
  19. EYLEA [Suspect]
     Active Substance: AFLIBERCEPT
     Dosage: 2 MG, ONCE, THIRD INJECTION
     Route: 031
     Dates: start: 20161114, end: 20161114
  20. EYLEA [Suspect]
     Active Substance: AFLIBERCEPT
     Dosage: 2 MG, ONCE, ELEVENTH INJECTION
     Route: 031
     Dates: start: 20171215, end: 20171215
  21. EYLEA [Suspect]
     Active Substance: AFLIBERCEPT
     Dosage: 2 MG, ONCE, TWENTYFIRST INJECTION
     Route: 031
     Dates: start: 20190320, end: 20190320
  22. EYLEA [Suspect]
     Active Substance: AFLIBERCEPT
     Dosage: 2 MG, ONCE, TWENTYSEVE NTH INJECTION
     Route: 031
     Dates: start: 20191016, end: 20191016
  23. EYLEA [Suspect]
     Active Substance: AFLIBERCEPT
     Dosage: 2 MG, ONCE, TWENTYNINTH INJECTION
     Route: 031
     Dates: start: 20191218, end: 20191218
  24. EYLEA [Suspect]
     Active Substance: AFLIBERCEPT
     Dosage: 2 MG, ONCE, NINTH INJECTION
     Route: 031
     Dates: start: 20170918, end: 20170918
  25. EYLEA [Suspect]
     Active Substance: AFLIBERCEPT
     Dosage: 2 MG, ONCE, FOURTEENTH INJECTION
     Route: 031
     Dates: start: 20180618, end: 20180618
  26. EYLEA [Suspect]
     Active Substance: AFLIBERCEPT
     Dosage: 2 MG, ONCE, TWENTYTHIRD INJECTION
     Route: 031
     Dates: start: 20190515, end: 20190515
  27. EYLEA [Suspect]
     Active Substance: AFLIBERCEPT
     Dosage: 2 MG, ONCE, SIXTH INJECTION
     Route: 031
     Dates: start: 20170515, end: 20170515
  28. EYLEA [Suspect]
     Active Substance: AFLIBERCEPT
     Dosage: 2 MG, ONCE, SEVENTEENTH INJECTION
     Route: 031
     Dates: start: 20180928, end: 20180928
  29. EYLEA [Suspect]
     Active Substance: AFLIBERCEPT
     Dosage: 2 MG, ONCE, TWENTYSECOND
     Route: 031
     Dates: start: 20190415, end: 20190415
  30. OMEGA 3                            /01334101/ [Concomitant]
     Active Substance: OMEGA-3 FATTY ACIDS
     Indication: PRODUCT USED FOR UNKNOWN INDICATION
     Dosage: UNK
  31. GINKOFAR                           /01003101/ [Concomitant]
     Indication: PRODUCT USED FOR UNKNOWN INDICATION
     Dosage: UNK
  32. EYLEA [Suspect]
     Active Substance: AFLIBERCEPT
     Dosage: 2 MG, ONCE, EIGHTEENTH INJECTION
     Route: 031
     Dates: start: 20181029, end: 20181029
  33. EYLEA [Suspect]
     Active Substance: AFLIBERCEPT
     Dosage: 2 MG, ONCE, THIRTYFIRST INJECTION
     Route: 031
     Dates: start: 20200422, end: 20200422

REACTIONS (1)
  - Death [Fatal]

NARRATIVE: CASE EVENT DATE: 20200512
